FAERS Safety Report 5705880-5 (Version None)
Quarter: 2008Q2

REPORT INFORMATION
  Report Type: 
  Country: None (occurrence: None)
  Receive Date: 20080415
  Receipt Date: 20080410
  Transmission Date: 20081010
  Serious: Yes (Hospitalization)
  Sender: FDA-Public Use
  Company Number: FR-WYE-G00722207

PATIENT
  Sex: Male
  Weight: 7.34 kg

DRUGS (1)
  1. ADVIL ENFANTS ET NOURRISSONS [Suspect]
     Indication: HYPERTHERMIA
     Dosage: UNSPECIFIED
     Route: 048
     Dates: start: 20070925, end: 20070926

REACTIONS (5)
  - ABDOMINAL DISTENSION [None]
  - GASTRIC ULCER [None]
  - HAEMATEMESIS [None]
  - HYPOVOLAEMIC SHOCK [None]
  - VOMITING [None]
